FAERS Safety Report 7257057-2 (Version None)
Quarter: 2011Q1

REPORT INFORMATION
  Report Type: 
  Country: None (occurrence: None)
  Receive Date: 20110129
  Receipt Date: 20100628
  Transmission Date: 20110831
  Serious: No
  Sender: FDA-Public Use
  Company Number: US-ABBOTT-10P-163-0654206-00

PATIENT
  Age: 60 Year
  Sex: Female

DRUGS (7)
  1. MIRAPEX [Concomitant]
     Indication: PRODUCT USED FOR UNKNOWN INDICATION
  2. ASACOL [Concomitant]
     Indication: PRODUCT USED FOR UNKNOWN INDICATION
  3. WELCHOL [Concomitant]
     Indication: PRODUCT USED FOR UNKNOWN INDICATION
  4. NASCABOL [Concomitant]
     Indication: PRODUCT USED FOR UNKNOWN INDICATION
  5. TRIMETRINE [Concomitant]
     Indication: PRODUCT USED FOR UNKNOWN INDICATION
  6. VIT D [Concomitant]
     Indication: PRODUCT USED FOR UNKNOWN INDICATION
  7. HUMIRA [Suspect]
     Indication: CROHN'S DISEASE
     Dates: start: 20100401

REACTIONS (2)
  - ALOPECIA [None]
  - SOMNOLENCE [None]
